FAERS Safety Report 13297300 (Version 1)
Quarter: 2017Q1

REPORT INFORMATION
  Report Type: Spontaneous
  Country: US (occurrence: US)
  Receive Date: 20170304
  Receipt Date: 20170304
  Transmission Date: 20170428
  Serious: Yes (Disabling)
  Sender: FDA-Public Use
  Company Number: None

PATIENT
  Age: 40 Year
  Sex: Female
  Weight: 88.65 kg

DRUGS (16)
  1. BREO ELLIPTA [Concomitant]
     Active Substance: FLUTICASONE FUROATE\VILANTEROL TRIFENATATE
  2. VENTOLIN [Concomitant]
     Active Substance: ALBUTEROL SULFATE
  3. IRBESARTAN. [Concomitant]
     Active Substance: IRBESARTAN
  4. VITAMIN B12 [Concomitant]
     Active Substance: CYANOCOBALAMIN
  5. NASACORT [Concomitant]
     Active Substance: TRIAMCINOLONE ACETONIDE
  6. BISOPROLOL/HCTZ [Concomitant]
     Active Substance: BISOPROLOL FUMARATE\HYDROCHLOROTHIAZIDE
  7. FLUVOXAMINE [Concomitant]
     Active Substance: FLUVOXAMINE
  8. METFORMIN [Concomitant]
     Active Substance: METFORMIN HYDROCHLORIDE
  9. HYOSCYAMINE SL [Concomitant]
     Active Substance: HYOSCYAMINE SULFATE
  10. LORATADINE. [Concomitant]
     Active Substance: LORATADINE
  11. MELATONIN [Concomitant]
     Active Substance: MELATONIN
  12. BYDUREON [Suspect]
     Active Substance: EXENATIDE
     Indication: DIABETES MELLITUS
     Dosage: QUANTITY:1 INJECTION(S);OTHER FREQUENCY:ONCE EACH WEEK;?
     Route: 058
     Dates: start: 20170130, end: 20170303
  13. ATORVASTATIN [Concomitant]
     Active Substance: ATORVASTATIN
  14. MIRENA [Concomitant]
     Active Substance: LEVONORGESTREL
  15. ALPRAZOLAM. [Concomitant]
     Active Substance: ALPRAZOLAM
  16. NAPROXEN. [Concomitant]
     Active Substance: NAPROXEN

REACTIONS (6)
  - Injection site pruritus [None]
  - Injection site erythema [None]
  - Skin swelling [None]
  - Injection site swelling [None]
  - Injection site pain [None]
  - Injection site nodule [None]

NARRATIVE: CASE EVENT DATE: 20170227
